FAERS Safety Report 5241467-9 (Version None)
Quarter: 2007Q1

REPORT INFORMATION
  Report Type: 
  Country: None (occurrence: None)
  Receive Date: 20070220
  Receipt Date: 20070216
  Transmission Date: 20070707
  Serious: Yes (Other)
  Sender: FDA-Public Use
  Company Number: US-GLAXOSMITHKLINE-A0630977A

PATIENT
  Age: 37 Year
  Sex: Female
  Weight: 59.1 kg

DRUGS (4)
  1. LAMICTAL [Suspect]
     Indication: BIPOLAR DISORDER
     Route: 048
  2. LUNESTA [Concomitant]
  3. EFFEXOR [Concomitant]
  4. ORAL CONTRACEPTIVE [Concomitant]

REACTIONS (5)
  - CELLULITIS [None]
  - IMPETIGO [None]
  - PAIN [None]
  - RASH [None]
  - RASH VESICULAR [None]
